FAERS Safety Report 7378103-1 (Version None)
Quarter: 2011Q1

REPORT INFORMATION
  Report Type: 
  Country: None (occurrence: None)
  Receive Date: 20110328
  Receipt Date: 20110324
  Transmission Date: 20110831
  Serious: Yes (Hospitalization, Other)
  Sender: FDA-Public Use
  Company Number: FR-B.I. PHARMACEUTICALS,INC./RIDGEFIELD-2011-FF-00156FF

PATIENT
  Sex: Female
  Weight: 62.4 kg

DRUGS (8)
  1. BI 201335 [Suspect]
     Dosage: 120 MG
     Route: 048
     Dates: start: 20110202, end: 20110304
  2. BI 201335 [Suspect]
     Indication: HEPATITIS C
     Dosage: 120 MG
     Route: 048
     Dates: start: 20110202, end: 20110304
  3. NEXIUM [Concomitant]
     Indication: DYSPEPSIA
     Dosage: 20 MG
     Route: 048
     Dates: start: 20110204
  4. PANTOPRAZOLE [Concomitant]
     Indication: DYSPEPSIA
     Dosage: 80 MG
     Route: 048
     Dates: start: 20110215
  5. MICARDIS [Suspect]
     Indication: HYPERTENSION
     Dosage: 20 MG
     Route: 048
     Dates: start: 20110209
  6. RIBAVIRIN [Suspect]
     Indication: HEPATITIS C
     Dosage: 1000 MG
     Route: 048
     Dates: start: 20110202, end: 20110304
  7. BI 207127 [Suspect]
     Indication: HEPATITIS C
     Dosage: 600 MG
     Route: 048
     Dates: start: 20110202, end: 20110304
  8. MICARDIS [Suspect]
     Indication: HYPERTENSION
     Dosage: 80 MG
     Route: 048
     Dates: start: 20100104, end: 20110209

REACTIONS (9)
  - PHOTOSENSITIVITY REACTION [None]
  - PYREXIA [None]
  - DYSPNOEA [None]
  - HYPOTENSION [None]
  - ANAEMIA [None]
  - DIARRHOEA [None]
  - ANGIOEDEMA [None]
  - DEHYDRATION [None]
  - NAUSEA [None]
